FAERS Safety Report 8565445-7 (Version None)
Quarter: 2012Q3

REPORT INFORMATION
  Report Type: 
  Country: None (occurrence: None)
  Receive Date: 20120803
  Receipt Date: 20120731
  Transmission Date: 20120928
  Serious: Yes (Other)
  Sender: FDA-Public Use
  Company Number: IT-PFIZER INC-2012187791

PATIENT
  Age: 87 Year
  Sex: Female

DRUGS (10)
  1. NITRODERM [Concomitant]
     Indication: ANGINA PECTORIS
     Dosage: 2 DF, UNK
     Route: 062
  2. IRBESARTAN [Concomitant]
     Indication: HYPERTENSION
     Dosage: 1 DF, UNK
  3. SPIRIDAZIDE [Concomitant]
     Indication: HYPERTENSION
     Dosage: 1 DF, UNK
     Route: 048
  4. RANEXA [Concomitant]
     Indication: ANGINA PECTORIS
     Dosage: 2 DF, UNK
     Route: 048
  5. PLAVIX [Concomitant]
     Indication: CARDIOVASCULAR EVENT PROPHYLAXIS
     Dosage: 1 DF, UNK
     Route: 048
  6. ATORVASTATIN CALCIUM [Concomitant]
     Indication: DYSLIPIDAEMIA
     Dosage: 1 DF, UNK
     Route: 048
  7. HALCION [Suspect]
     Dosage: 1 DF, TOTAL DOSE
     Route: 048
     Dates: start: 20120705, end: 20120705
  8. ACETYLSALICYLIC ACID [Concomitant]
     Indication: CARDIOVASCULAR EVENT PROPHYLAXIS
     Dosage: 100 MG, UNK
     Route: 048
  9. TRAMADOL HCL [Concomitant]
     Dosage: 15 GTT, UNK
     Route: 048
  10. PANTOPRAZOLE [Concomitant]
     Indication: GASTRIC ULCER
     Dosage: 2 DF, UNK
     Route: 048

REACTIONS (1)
  - LOSS OF CONSCIOUSNESS [None]
